FAERS Safety Report 18515379 (Version 2)
Quarter: 2020Q4

REPORT INFORMATION
  Report Type: Spontaneous
  Country: US (occurrence: US)
  Receive Date: 20201118
  Receipt Date: 20201125
  Transmission Date: 20210114
  Serious: Yes (Life-Threatening, Hospitalization, Other)
  Sender: FDA-Public Use
  Company Number: US-AUROBINDO-AUR-APL-2020-056170

PATIENT
  Age: 52 Year
  Sex: Female

DRUGS (6)
  1. AMIODARONE HYDROCHLORIDE. [Suspect]
     Active Substance: AMIODARONE HYDROCHLORIDE
     Indication: ARRHYTHMIA PROPHYLAXIS
     Dosage: 400 MILLIGRAM, TWO TIMES A DAY
     Route: 048
  2. HEPARIN [Suspect]
     Active Substance: HEPARIN SODIUM
     Dosage: 3100 INTERNATIONAL UNIT (10 DAYS BEFORE SURGERY)
     Route: 042
  3. HEPARIN [Suspect]
     Active Substance: HEPARIN SODIUM
     Indication: THROMBOSIS PROPHYLAXIS
     Dosage: 5000 INTERNATIONAL UNIT, TWO TIMES A DAY
     Route: 058
  4. HEPARIN [Suspect]
     Active Substance: HEPARIN SODIUM
     Indication: ANTICOAGULANT THERAPY
     Dosage: 42000 INTERNATIONAL UNIT
     Route: 042
  5. AMIODARONE HYDROCHLORIDE. [Suspect]
     Active Substance: AMIODARONE HYDROCHLORIDE
     Indication: ATRIAL FIBRILLATION
     Dosage: 200 MILLIGRAM, TWO TIMES A DAY
     Route: 048
  6. AMIODARONE HYDROCHLORIDE. [Suspect]
     Active Substance: AMIODARONE HYDROCHLORIDE
     Dosage: 300 MILLIGRAM 1 TOTAL (2 150-MG BOLUSES)
     Route: 040

REACTIONS (9)
  - Respiratory alkalosis [Recovered/Resolved]
  - Nosocomial infection [Recovered/Resolved]
  - Drug hypersensitivity [Recovered/Resolved]
  - Mixed liver injury [Recovered/Resolved]
  - Drug-induced liver injury [Recovered/Resolved]
  - Hypoglycaemia [Recovered/Resolved]
  - Encephalopathy [Recovered/Resolved]
  - Hepatotoxicity [Recovered/Resolved]
  - Hypogammaglobulinaemia [Recovered/Resolved]
